FAERS Safety Report 4902318-2 (Version None)
Quarter: 2006Q1

REPORT INFORMATION
  Report Type: 
  Country: None (occurrence: None)
  Receive Date: 20060202
  Receipt Date: 20060125
  Transmission Date: 20060701
  Serious: Yes (Death)
  Sender: FDA-Public Use
  Company Number: 200600226

PATIENT
  Age: 64 Year
  Sex: Female

DRUGS (1)
  1. DYSPORT (BOTULINUM TOXIN TYPE A) [Suspect]
     Indication: TORTICOLLIS
     Dosage: UNITS

REACTIONS (3)
  - DYSPHAGIA [None]
  - NASOPHARYNGITIS [None]
  - SUDDEN CARDIAC DEATH [None]
